FAERS Safety Report 8257983-1 (Version None)
Quarter: 2012Q2

REPORT INFORMATION
  Report Type: 
  Country: None (occurrence: None)
  Receive Date: 20120404
  Receipt Date: 20120327
  Transmission Date: 20120825
  Serious: Yes (Hospitalization, Other)
  Sender: FDA-Public Use
  Company Number: US-BAYER-2011-096251

PATIENT
  Age: 39 Year
  Sex: Female
  Weight: 56.689 kg

DRUGS (8)
  1. ADDERALL 5 [Concomitant]
  2. DROSPIRENONE AND ETHINYL ESTRADIOL [Suspect]
     Dosage: UNK
     Route: 048
     Dates: start: 20040101, end: 20090101
  3. FEXOFENADINE HYDROCHLORIDE [Concomitant]
     Dosage: UNK
     Dates: start: 20090928
  4. ALLEGRA [Concomitant]
     Indication: MULTIPLE ALLERGIES
     Dosage: UNK
     Dates: start: 20040101
  5. KAPIDEX [Concomitant]
     Dosage: UNK
     Dates: start: 20091015
  6. TRAZODONE HCL [Concomitant]
     Indication: SLEEP DISORDER THERAPY
     Dosage: UNK
     Dates: start: 20091028
  7. YASMIN [Suspect]
     Dosage: UNK
     Route: 048
     Dates: start: 20040101, end: 20090101
  8. NEXIUM [Concomitant]
     Indication: GASTROOESOPHAGEAL REFLUX DISEASE
     Dosage: UNK
     Dates: start: 20040101

REACTIONS (9)
  - INJURY [None]
  - EMOTIONAL DISTRESS [None]
  - ANXIETY [None]
  - CHOLECYSTITIS CHRONIC [None]
  - GENERAL PHYSICAL HEALTH DETERIORATION [None]
  - GALLBLADDER INJURY [None]
  - PAIN [None]
  - PULMONARY EMBOLISM [None]
  - DEEP VEIN THROMBOSIS [None]
